FAERS Safety Report 14898154 (Version 2)
Quarter: 2018Q2

REPORT INFORMATION
  Report Type: Spontaneous
  Country: US (occurrence: US)
  Receive Date: 20180515
  Receipt Date: 20180517
  Transmission Date: 20180711
  Serious: No
  Sender: FDA-Public Use
  Company Number: US-SA-2018SA045537

PATIENT

DRUGS (9)
  1. SOLOSTAR [Suspect]
     Active Substance: DEVICE
  2. BYETTA [Concomitant]
     Active Substance: EXENATIDE
     Route: 065
  3. SULFONYLUREAS [Concomitant]
     Active Substance: UNSPECIFIED INGREDIENT
     Route: 065
  4. TRAJENTA [Concomitant]
     Active Substance: LINAGLIPTIN
     Route: 065
  5. INVOKANA [Concomitant]
     Active Substance: CANAGLIFLOZIN
     Route: 065
  6. HUMALOG MIX [Concomitant]
     Active Substance: INSULIN LISPRO
     Dosage: HUMALOG MIX 25
     Route: 065
  7. TOUJEO [Suspect]
     Active Substance: INSULIN GLARGINE
     Route: 058
  8. XULTOPHY 100/3.6 [Concomitant]
     Active Substance: INSULIN DEGLUDEC\LIRAGLUTIDE
     Route: 065
  9. NOVOLOG [Concomitant]
     Active Substance: INSULIN ASPART
     Route: 065

REACTIONS (1)
  - Glycosylated haemoglobin increased [Unknown]
